FAERS Safety Report 8551424-2 (Version None)
Quarter: 2012Q3

REPORT INFORMATION
  Report Type: 
  Country: None (occurrence: None)
  Receive Date: 20120730
  Receipt Date: 20120316
  Transmission Date: 20120928
  Serious: No
  Sender: FDA-Public Use
  Company Number: US-ALLERGAN-1202214US

PATIENT
  Age: 45 Year
  Sex: Female

DRUGS (2)
  1. LATISSE [Suspect]
     Indication: GROWTH OF EYELASHES
     Dosage: 2 GTT, QHS
     Route: 061
     Dates: start: 20120101, end: 20120213
  2. LATISSE [Suspect]
     Dosage: UNK
     Dates: start: 20110801, end: 20111201

REACTIONS (2)
  - MADAROSIS [None]
  - ALOPECIA [None]
